FAERS Safety Report 5239116-9 (Version None)
Quarter: 2007Q1

REPORT INFORMATION
  Report Type: 
  Country: None (occurrence: None)
  Receive Date: 20061208
  Receipt Date: 20050512
  Transmission Date: 20070707
  Serious: Yes (Other)
  Sender: FDA-Public Use
  Company Number: 2005UW07434

PATIENT
  Age: 66 Year
  Sex: Female
  Weight: 79.378 kg

DRUGS (2)
  1. CRESTOR [Suspect]
     Dosage: 5 MG QD PO
     Route: 048
  2. HORMONE REPLACEMENT THERAPY [Concomitant]

REACTIONS (2)
  - BLOOD PRESSURE FLUCTUATION [None]
  - HEART RATE INCREASED [None]
